FAERS Safety Report 5481355-6 (Version None)
Quarter: 2007Q4

REPORT INFORMATION
  Report Type: 
  Country: None (occurrence: None)
  Receive Date: 20071005
  Receipt Date: 20071005
  Transmission Date: 20080405
  Serious: Yes (Hospitalization)
  Sender: FDA-Public Use
  Company Number: None

PATIENT
  Sex: Female
  Weight: 48 kg

DRUGS (1)
  1. DIPRIVAN [Suspect]
     Indication: SEDATION
     Dosage: 160 MCG/KG/MIN   IV DRIP
     Route: 041

REACTIONS (3)
  - CHILLS [None]
  - PYREXIA [None]
  - SUPRAVENTRICULAR TACHYCARDIA [None]
